FAERS Safety Report 6931046-7 (Version None)
Quarter: 2010Q3

REPORT INFORMATION
  Report Type: 
  Country: None (occurrence: None)
  Receive Date: 20100818
  Receipt Date: 20100810
  Transmission Date: 20110219
  Serious: Yes (Other)
  Sender: FDA-Public Use
  Company Number: SG-MPIJNJ-2010-03749

PATIENT

DRUGS (2)
  1. VELCADE [Suspect]
     Indication: MULTIPLE MYELOMA
     Dosage: 1.4 MG, UNK
     Route: 042
  2. LAMIVUDINE [Concomitant]
     Indication: PROPHYLAXIS

REACTIONS (1)
  - HEPATITIS B [None]
